FAERS Safety Report 9465458 (Version 1)
Quarter: 2013Q3

REPORT INFORMATION
  Report Type: Spontaneous
  Country: US (occurrence: US)
  Receive Date: 20130820
  Receipt Date: 20130820
  Transmission Date: 20140515
  Serious: No
  Sender: FDA-Public Use
  Company Number: US-B.I. PHARMACEUTICALS,INC./RIDGEFIELD-2013-BI-24299BP

PATIENT
  Age: 85 Year
  Sex: Female
  Weight: 66 kg

DRUGS (5)
  1. ATROVENT INHALATION SOLUTION [Suspect]
     Indication: EMPHYSEMA
     Dosage: 136 MCG
     Route: 055
     Dates: start: 2004
  2. ADVAIR [Concomitant]
     Indication: EMPHYSEMA
     Dosage: (INHALATION SPRAY) STRENGTH: 500/50; DAILY DOSE: 1000/100
     Route: 055
     Dates: start: 2006
  3. FELODIPINE [Concomitant]
     Indication: HYPERTENSION
     Dosage: 10 MG
     Route: 048
  4. OMEPRAZOLE [Concomitant]
     Indication: HIATUS HERNIA
     Dosage: 20 MG
     Route: 048
  5. HCTZ [Concomitant]
     Indication: HYPERTENSION
     Dosage: 12.5 MG
     Route: 048

REACTIONS (1)
  - Oxygen saturation decreased [Not Recovered/Not Resolved]
